FAERS Safety Report 10215325 (Version 1)
Quarter: 2014Q2

REPORT INFORMATION
  Report Type: Spontaneous
  Country: NL (occurrence: NL)
  Receive Date: 20140603
  Receipt Date: 20140603
  Transmission Date: 20141212
  Serious: Yes (Hospitalization)
  Sender: FDA-Public Use
  Company Number: PHHY2014NL066076

PATIENT
  Age: 70 Year
  Sex: Female

DRUGS (5)
  1. GEMFIBROZIL SANDOZ [Suspect]
     Dosage: 500 MG, UNK
     Route: 048
     Dates: start: 20130802, end: 20130804
  2. METFORMINE [Concomitant]
     Dosage: 500 MG, TID
     Route: 048
  3. COZAAR [Concomitant]
     Dosage: 100 MG, QD
     Route: 048
  4. ACENOCOUMAROL [Concomitant]
     Route: 048
  5. MESILAAT [Concomitant]
     Dosage: 5 MG, QD
     Route: 048

REACTIONS (6)
  - Asthenia [Not Recovered/Not Resolved]
  - Decreased appetite [Not Recovered/Not Resolved]
  - Abasia [Not Recovered/Not Resolved]
  - Myalgia [Not Recovered/Not Resolved]
  - Vomiting [Not Recovered/Not Resolved]
  - Arthralgia [Not Recovered/Not Resolved]
